FAERS Safety Report 8302896-X (Version None)
Quarter: 2012Q2

REPORT INFORMATION
  Report Type: 
  Country: None (occurrence: None)
  Receive Date: 20120420
  Receipt Date: 20120413
  Transmission Date: 20120825
  Serious: Yes (Other)
  Sender: FDA-Public Use
  Company Number: VE-PFIZER INC-2012094830

PATIENT
  Age: 36 Year
  Sex: Female

DRUGS (4)
  1. LIPITOR [Suspect]
     Indication: HYPERCHOLESTEROLAEMIA
     Dosage: 20 MG, 1X/DAY
     Route: 048
     Dates: start: 20110617, end: 20110804
  2. LEVOTHYROXINE SODIUM [Concomitant]
     Indication: THYROID DISORDER
     Dosage: 50 MG, UNK
     Route: 048
  3. LIPITOR [Suspect]
     Indication: HYPERTRIGLYCERIDAEMIA
  4. GLUCOFAGE [Concomitant]
     Indication: INSULIN RESISTANCE SYNDROME
     Dosage: 1 G, UNK
     Route: 048

REACTIONS (4)
  - VOMITING [None]
  - PREMATURE DELIVERY [None]
  - GESTATIONAL HYPERTENSION [None]
  - AMNIORRHOEA [None]
